FAERS Safety Report 8297413-7 (Version None)
Quarter: 2012Q2

REPORT INFORMATION
  Report Type: 
  Country: None (occurrence: None)
  Receive Date: 20120419
  Receipt Date: 20120416
  Transmission Date: 20120825
  Serious: Yes (Congenital Anomaly, Other)
  Sender: FDA-Public Use
  Company Number: US-PFIZER INC-2012095185

PATIENT

DRUGS (1)
  1. ZOLOFT [Suspect]
     Dosage: UNK
     Route: 064

REACTIONS (4)
  - RESPIRATORY DISORDER NEONATAL [None]
  - MATERNAL EXPOSURE TIMING UNSPECIFIED [None]
  - CONGENITAL ANOMALY [None]
  - CARDIAC DISORDER [None]
